FAERS Safety Report 14110708 (Version 2)
Quarter: 2018Q2

REPORT INFORMATION
  Report Type: Spontaneous
  Country: FR (occurrence: FR)
  Receive Date: 20171020
  Receipt Date: 20180530
  Transmission Date: 20180711
  Serious: Yes (Other)
  Sender: FDA-Public Use
  Company Number: FR-MERCK KGAA-2030865

PATIENT
  Age: 36 Year
  Sex: Female

DRUGS (1)
  1. NOVOTHYROX [Suspect]
     Active Substance: LEVOTHYROXINE SODIUM
     Indication: POST PROCEDURAL HYPOTHYROIDISM
     Route: 048
     Dates: start: 20170529

REACTIONS (25)
  - Eye irritation [Recovering/Resolving]
  - Migraine [Recovering/Resolving]
  - Musculoskeletal pain [Recovering/Resolving]
  - Disturbance in attention [Recovered/Resolved]
  - Mood altered [Recovering/Resolving]
  - Burnout syndrome [Recovering/Resolving]
  - Lacrimation increased [Recovering/Resolving]
  - Anxiety [Recovering/Resolving]
  - Blood creatinine increased [Recovering/Resolving]
  - Sleep disorder [Recovering/Resolving]
  - Blood thyroid stimulating hormone normal [Recovering/Resolving]
  - Tension [Recovering/Resolving]
  - Blood uric acid decreased [Recovering/Resolving]
  - Headache [Recovering/Resolving]
  - Dizziness [Recovering/Resolving]
  - Back pain [Recovering/Resolving]
  - Diffuse alopecia [Recovering/Resolving]
  - Eye pain [Recovering/Resolving]
  - Abnormal behaviour [Recovering/Resolving]
  - Disturbance in social behaviour [Recovered/Resolved]
  - Fatigue [Recovering/Resolving]
  - Irritability [Recovering/Resolving]
  - Aggression [Recovering/Resolving]
  - Depressed mood [Recovering/Resolving]
  - Tachycardia [Recovering/Resolving]

NARRATIVE: CASE EVENT DATE: 201705
